FAERS Safety Report 7898405-X (Version None)
Quarter: 2011Q4

REPORT INFORMATION
  Report Type: 
  Country: None (occurrence: None)
  Receive Date: 20111107
  Receipt Date: 20111102
  Transmission Date: 20120403
  Serious: Yes (Other)
  Sender: FDA-Public Use
  Company Number: JP-BRACCO-005339

PATIENT

DRUGS (2)
  1. IOPAMIDOL [Suspect]
     Indication: RENAL CELL CARCINOMA
     Dosage: 50 ML/BODY (0.94 ? 0.21 ML/KG)
     Route: 040
  2. IOPAMIDOL [Suspect]
     Indication: ANGIOGRAM
     Dosage: 50 ML/BODY (0.94 ? 0.21 ML/KG)
     Route: 040

REACTIONS (1)
  - ATRIAL FIBRILLATION [None]
